FAERS Safety Report 22140861 (Version 1)
Quarter: 2023Q1

REPORT INFORMATION
  Report Type: Spontaneous
  Country: US (occurrence: None)
  Receive Date: 20230324
  Receipt Date: 20230324
  Transmission Date: 20230417
  Serious: Yes (Life-Threatening, Hospitalization, Disabling)
  Sender: FDA-Public Use
  Company Number: None

PATIENT
  Age: 59 Year
  Sex: Female
  Weight: 70 kg

DRUGS (29)
  1. AVASTIN [Suspect]
     Active Substance: BEVACIZUMAB
     Indication: Vaginal cancer metastatic
     Dosage: OTHER FREQUENCY : ONCE EVERY 3 WEEKS;?
     Route: 042
     Dates: start: 20230209, end: 20230209
  2. PLATINOL [Suspect]
     Active Substance: CISPLATIN
     Indication: Vaginal cancer metastatic
     Dosage: OTHER QUANTITY : 1 INJECTION(S);?OTHER FREQUENCY : ONCE EVERY 3 WEEKS;?
     Route: 042
     Dates: start: 20230209, end: 20230209
  3. ACETAMINOPHEN [Concomitant]
     Active Substance: ACETAMINOPHEN
  4. ALBUTEROL SULFATE [Concomitant]
     Active Substance: ALBUTEROL SULFATE
  5. ATORVASTATIN [Concomitant]
     Active Substance: ATORVASTATIN
  6. BACLOFEN [Concomitant]
     Active Substance: BACLOFEN
  7. CHOLECALCIFEROL [Concomitant]
     Active Substance: CHOLECALCIFEROL
  8. CITALOPRAM [Concomitant]
     Active Substance: CITALOPRAM HYDROBROMIDE
  9. ERGOCALCIFEROL [Concomitant]
     Active Substance: ERGOCALCIFEROL
  10. GABAPENTIN [Concomitant]
     Active Substance: GABAPENTIN
  11. HYDROCODONE [Concomitant]
     Active Substance: HYDROCODONE
  12. LEVETIRACETAM [Concomitant]
     Active Substance: LEVETIRACETAM
  13. LOPERAMIDE [Concomitant]
     Active Substance: LOPERAMIDE
  14. LORATADINE [Concomitant]
     Active Substance: LORATADINE
  15. MELATONIN [Concomitant]
     Active Substance: MELATONIN
  16. NYSTATIN [Concomitant]
     Active Substance: NYSTATIN
  17. ONDANSETRON [Concomitant]
     Active Substance: ONDANSETRON
  18. Intrathecal Pain Pump [Concomitant]
  19. MORPHINE [Concomitant]
     Active Substance: MORPHINE
  20. BACLOFEN [Concomitant]
     Active Substance: BACLOFEN
  21. BUPIVACAINE [Concomitant]
     Active Substance: BUPIVACAINE
  22. PHENAZOPYRIDINE [Concomitant]
     Active Substance: PHENAZOPYRIDINE
  23. PROCHLORPERAZINE MALEATE [Concomitant]
     Active Substance: PROCHLORPERAZINE MALEATE
  24. PROPRANOLOL [Concomitant]
     Active Substance: PROPRANOLOL HYDROCHLORIDE
  25. PSEUDOEPHEDRINE [Concomitant]
     Active Substance: PSEUDOEPHEDRINE
  26. DOCUSATE SODIUM\SENNOSIDES [Concomitant]
     Active Substance: DOCUSATE SODIUM\SENNOSIDES
  27. SIMETHICONE (DIMETHICONE) [Concomitant]
     Active Substance: DIMETHICONE
  28. SODIUM CHLORIDE [Concomitant]
     Active Substance: SODIUM CHLORIDE
  29. (Triad) topical paste [Concomitant]

REACTIONS (3)
  - Posterior reversible encephalopathy syndrome [None]
  - Acute respiratory failure [None]
  - Respiratory failure [None]

NARRATIVE: CASE EVENT DATE: 20230301
